FAERS Safety Report 10023683 (Version 1)
Quarter: 2014Q1

REPORT INFORMATION
  Report Type: Spontaneous
  Country: SE (occurrence: SE)
  Receive Date: 20140320
  Receipt Date: 20140320
  Transmission Date: 20141002
  Serious: Yes (Death, Hospitalization, Other)
  Sender: FDA-Public Use
  Company Number: SE-JNJFOC-20140306887

PATIENT
  Sex: 0

DRUGS (3)
  1. HALOPERIDOL [Suspect]
     Indication: GENERAL PHYSICAL CONDITION ABNORMAL
     Route: 065
  2. HALOPERIDOL [Suspect]
     Indication: MENTAL DISORDER
     Route: 065
  3. HALOPERIDOL [Suspect]
     Indication: SCHIZOPHRENIA
     Route: 065

REACTIONS (3)
  - Death [Fatal]
  - Completed suicide [Fatal]
  - Suicide attempt [Unknown]
